FAERS Safety Report 5390400-8 (Version None)
Quarter: 2007Q3

REPORT INFORMATION
  Report Type: 
  Country: None (occurrence: None)
  Receive Date: 20070718
  Receipt Date: 20070327
  Transmission Date: 20080115
  Serious: No
  Sender: FDA-Public Use
  Company Number: US-KINGPHARMUSA00001-K200700374

PATIENT

DRUGS (5)
  1. LEVOXYL [Suspect]
     Indication: POST PROCEDURAL HYPOTHYROIDISM
     Dosage: 112 MCG, QD
     Route: 048
     Dates: start: 20060701, end: 20061001
  2. LEVOXYL [Suspect]
     Dosage: 125 MCG, QD
     Route: 048
     Dates: start: 20061001, end: 20061101
  3. LEVOXYL [Suspect]
     Dosage: 150 MCG, QD
     Route: 048
     Dates: start: 20061101
  4. ORTHO TRI-CYCLEN [Concomitant]
     Indication: ORAL CONTRACEPTION
     Dosage: UNK, QD
     Route: 048
     Dates: start: 20060101
  5. LEXAPRO [Concomitant]
     Indication: ANXIETY
     Dosage: UNK, QD
     Route: 048
     Dates: start: 20070301

REACTIONS (3)
  - CONVULSION [None]
  - DISTURBANCE IN ATTENTION [None]
  - HYPOAESTHESIA [None]
